FAERS Safety Report 9248354 (Version 1)
Quarter: 2013Q2

REPORT INFORMATION
  Report Type: Spontaneous
  Country: US (occurrence: None)
  Receive Date: 20130419
  Receipt Date: 20130419
  Transmission Date: 20140414
  Serious: Yes (Hospitalization)
  Sender: FDA-Public Use
  Company Number: None

PATIENT
  Age: 59 Year
  Sex: Female

DRUGS (1)
  1. SYNTHROID 75 MCG [Suspect]
     Indication: HYPOTHYROIDISM
     Dosage: 75 MCG 1 TABLET DAILY
     Dates: start: 20121221, end: 20130228

REACTIONS (1)
  - Multiple allergies [None]
